FAERS Safety Report 5878745-6 (Version None)
Quarter: 2008Q3

REPORT INFORMATION
  Report Type: 
  Country: None (occurrence: None)
  Receive Date: 20080912
  Receipt Date: 20080908
  Transmission Date: 20090109
  Serious: Yes (Death)
  Sender: FDA-Public Use
  Company Number: US-CELGENEUS-163-21880-08080878

PATIENT
  Sex: Female

DRUGS (1)
  1. REVLIMID [Suspect]
     Indication: 5Q MINUS SYNDROME
     Route: 048
     Dates: start: 20080301, end: 20080401

REACTIONS (3)
  - MALIGNANT NEOPLASM PROGRESSION [None]
  - PANCYTOPENIA [None]
  - RESPIRATORY FAILURE [None]
